FAERS Safety Report 16562711 (Version 2)
Quarter: 2019Q3

REPORT INFORMATION
  Report Type: Report from Study
  Country: NL (occurrence: NL)
  Receive Date: 20190711
  Receipt Date: 20190716
  Transmission Date: 20191004
  Serious: Yes (Death, Other)
  Sender: FDA-Public Use
  Company Number: NL-GLAXOSMITHKLINE-NL2019EME118133

PATIENT

DRUGS (2)
  1. TAMIFLU [Suspect]
     Active Substance: OSELTAMIVIR PHOSPHATE
     Indication: INFLUENZA
     Dosage: UNK
  2. ZANAMIVIR [Suspect]
     Active Substance: ZANAMIVIR
     Indication: INFLUENZA
     Dosage: 250 MG, BID
     Route: 042
     Dates: start: 20190625

REACTIONS (2)
  - Blood creatinine abnormal [Unknown]
  - Death [Fatal]
